FAERS Safety Report 15230004 (Version 1)
Quarter: 2018Q3

REPORT INFORMATION
  Report Type: Spontaneous
  Country: ZA (occurrence: ZA)
  Receive Date: 20180802
  Receipt Date: 20180802
  Transmission Date: 20181010
  Serious: Yes (Other)
  Sender: FDA-Public Use
  Company Number: ZA-DRREDDYS-SAF/SAF/18/0100919

PATIENT
  Sex: Female

DRUGS (5)
  1. YELATE [Suspect]
     Active Substance: DULOXETINE HYDROCHLORIDE
     Indication: DEPRESSION
     Route: 048
     Dates: start: 201801
  2. BIOTECH TRAZODONE [Suspect]
     Active Substance: TRAZODONE HYDROCHLORIDE
     Indication: DEPRESSION
     Route: 048
     Dates: start: 201711
  3. LYRICA [Suspect]
     Active Substance: PREGABALIN
     Indication: EPILEPSY
     Route: 048
     Dates: start: 201711
  4. TRUSTAN [Suspect]
     Active Substance: ESOMEPRAZOLE
     Indication: DYSPEPSIA
     Route: 048
     Dates: start: 201801
  5. TRAMAHEXAL [Suspect]
     Active Substance: TRAMADOL HYDROCHLORIDE
     Indication: PAIN
     Route: 048
     Dates: start: 201711

REACTIONS (1)
  - Spinal operation [Unknown]
